FAERS Safety Report 5781445-4 (Version None)
Quarter: 2008Q2

REPORT INFORMATION
  Report Type: 
  Country: None (occurrence: None)
  Receive Date: 20080623
  Receipt Date: 20071016
  Transmission Date: 20081010
  Serious: No
  Sender: FDA-Public Use
  Company Number: US-ASTRAZENECA-2007UW24063

PATIENT

DRUGS (1)
  1. ENTOCORT EC [Suspect]
     Route: 048

REACTIONS (1)
  - OESOPHAGEAL CANDIDIASIS [None]
